FAERS Safety Report 21874514 (Version 1)
Quarter: 2023Q1

REPORT INFORMATION
  Report Type: Spontaneous
  Country: AU (occurrence: None)
  Receive Date: 20230117
  Receipt Date: 20230117
  Transmission Date: 20230418
  Serious: Yes (Other)
  Sender: FDA-Public Use
  Company Number: 2023A003811

PATIENT
  Age: 56 Year
  Sex: Female

DRUGS (1)
  1. FASLODEX [Suspect]
     Active Substance: FULVESTRANT
     Indication: BRCA1 gene mutation
     Route: 030

REACTIONS (4)
  - Malignant neoplasm progression [Unknown]
  - Metastases to meninges [Unknown]
  - VIth nerve paralysis [Unknown]
  - Metastases to liver [Unknown]
